FAERS Safety Report 17694295 (Version 2)
Quarter: 2020Q2

REPORT INFORMATION
  Report Type: Report from Study
  Country: US (occurrence: US)
  Receive Date: 20200422
  Receipt Date: 20200527
  Transmission Date: 20200714
  Serious: Yes (Other)
  Sender: FDA-Public Use
  Company Number: US-MYLANLABS-2020M1040262

PATIENT
  Age: 19 Year
  Sex: Female
  Weight: 54.43 kg

DRUGS (1)
  1. GLATIRAMER ACETATE INJECTION [Suspect]
     Active Substance: GLATIRAMER ACETATE
     Indication: RELAPSING MULTIPLE SCLEROSIS
     Dosage: 40 MG THREE DAYS A WEEK
     Dates: start: 20200320, end: 20200511

REACTIONS (9)
  - Nervousness [Recovered/Resolved]
  - Injury [Unknown]
  - Injection site mass [Unknown]
  - Injection site pruritus [Recovering/Resolving]
  - Femur fracture [Unknown]
  - Eye movement disorder [Recovered/Resolved]
  - Injection site urticaria [Unknown]
  - Erythema [Recovered/Resolved]
  - Dyspnoea [Recovered/Resolved]

NARRATIVE: CASE EVENT DATE: 20200511
